FAERS Safety Report 4401388-8 (Version None)
Quarter: 2004Q3

REPORT INFORMATION
  Report Type: 
  Country: None (occurrence: None)
  Receive Date: 20040907
  Receipt Date: 20040408
  Transmission Date: 20050211
  Serious: No
  Sender: FDA-Public Use
  Company Number: US-BRISTOL-MYERS SQUIBB COMPANY-12555850

PATIENT
  Age: 73 Year
  Sex: Female
  Weight: 77 kg

DRUGS (7)
  1. COUMADIN [Suspect]
     Indication: KNEE ARTHROPLASTY
     Route: 048
     Dates: start: 20040303, end: 20040329
  2. HYDROCHLOROTHIAZIDE [Concomitant]
  3. NORVASC [Concomitant]
  4. PREMARIN [Concomitant]
  5. AMBIEN [Concomitant]
  6. DETROL LA [Concomitant]
  7. ZYRTEC [Concomitant]

REACTIONS (2)
  - RASH [None]
  - TEMPERATURE INTOLERANCE [None]
